FAERS Safety Report 6734071-4 (Version None)
Quarter: 2010Q2

REPORT INFORMATION
  Report Type: 
  Country: None (occurrence: None)
  Receive Date: 20100520
  Receipt Date: 20100510
  Transmission Date: 20101027
  Serious: Yes (Hospitalization)
  Sender: FDA-Public Use
  Company Number: AU-ELI_LILLY_AND_COMPANY-AU201003008703

PATIENT
  Sex: Male
  Weight: 77.3 kg

DRUGS (12)
  1. PEMETREXED [Suspect]
     Indication: NON-SMALL CELL LUNG CANCER
     Dosage: 500 MG/M2, DAY 1 EVERY 21 DAYS
     Route: 042
     Dates: start: 20100222
  2. CISPLATIN [Suspect]
     Indication: NON-SMALL CELL LUNG CANCER
     Dosage: 75 MG/M2, DAY 1 EVERY 21 DAYS
     Route: 042
     Dates: start: 20100222
  3. FOLIC ACID [Concomitant]
     Indication: PROPHYLAXIS
     Dates: start: 20100215
  4. VITAMIN B-12 [Concomitant]
     Indication: PROPHYLAXIS
     Dates: start: 20100222
  5. DEXAMETHASONE [Concomitant]
     Indication: PROPHYLAXIS
     Dates: start: 20100221
  6. OXYCONTIN [Concomitant]
     Indication: PAIN
     Dates: start: 20100209
  7. CELEBREX [Concomitant]
     Indication: INSOMNIA
     Dates: start: 20100209
  8. TEMTABS [Concomitant]
     Indication: PAIN
     Dates: start: 20100209
  9. PANAMAX [Concomitant]
     Indication: PAIN
     Dates: start: 20100209
  10. NEXIUM [Concomitant]
     Indication: GASTROOESOPHAGEAL REFLUX DISEASE
     Dates: start: 20100209
  11. COLOXYL WITH SENNA [Concomitant]
     Indication: CONSTIPATION
     Dates: start: 20100209
  12. ENDONE [Concomitant]
     Indication: PAIN
     Dates: start: 20100222

REACTIONS (2)
  - DYSPNOEA [None]
  - TACHYCARDIA [None]
